FAERS Safety Report 14894709 (Version 4)
Quarter: 2018Q3

REPORT INFORMATION
  Report Type: Other
  Country: JP (occurrence: JP)
  Receive Date: 20180515
  Receipt Date: 20180801
  Transmission Date: 20181010
  Serious: Yes (Life-Threatening, Hospitalization, Disabling)
  Sender: FDA-Public Use
  Company Number: JP-ASTELLAS-2018JP008351

PATIENT
  Age: 7 Year
  Sex: Male
  Weight: 28 kg

DRUGS (35)
  1. LAMOTRIGINE. [Concomitant]
     Active Substance: LAMOTRIGINE
     Indication: PRODUCT USED FOR UNKNOWN INDICATION
     Dosage: UNK UNK, UNKNOWN FREQ.
     Route: 065
  2. MIDAZOLAM [Concomitant]
     Active Substance: MIDAZOLAM HYDROCHLORIDE
     Indication: STATUS EPILEPTICUS
     Dosage: UNK UNK, CONTINUOUS
     Route: 065
  3. NOBELBAR [Concomitant]
     Active Substance: PHENOBARBITAL SODIUM
     Indication: PRODUCT USED FOR UNKNOWN INDICATION
     Dosage: UNK UNK, UNKNOWN FREQ.
     Route: 065
     Dates: end: 20180119
  4. L CARTIN [Concomitant]
     Active Substance: LEVOCARNITINE HYDROCHLORIDE
     Route: 048
  5. PROPOFOL. [Concomitant]
     Active Substance: PROPOFOL
     Indication: SEIZURE
     Dosage: UNK UNK, UNKNOWN FREQ.
     Route: 065
     Dates: start: 20160516
  6. PHENOBARBITAL. [Concomitant]
     Active Substance: PHENOBARBITAL
     Indication: EPILEPSY
     Dosage: UNK UNK, UNKNOWN FREQ.
     Route: 048
     Dates: start: 20160528, end: 201708
  7. PHENOBARBITAL. [Concomitant]
     Active Substance: PHENOBARBITAL
     Route: 048
     Dates: start: 201708, end: 201708
  8. PHENOBARBITAL. [Concomitant]
     Active Substance: PHENOBARBITAL
     Route: 048
     Dates: start: 201708, end: 201708
  9. CARBAMAZEPINE. [Concomitant]
     Active Substance: CARBAMAZEPINE
     Indication: PRODUCT USED FOR UNKNOWN INDICATION
     Dosage: UNK UNK, UNKNOWN FREQ.
     Route: 065
  10. CLONAZEPAM. [Concomitant]
     Active Substance: CLONAZEPAM
     Indication: PRODUCT USED FOR UNKNOWN INDICATION
     Dosage: 0.7, ONCE DAILY
     Route: 048
     Dates: start: 201709, end: 201709
  11. CLONAZEPAM. [Concomitant]
     Active Substance: CLONAZEPAM
     Dosage: 0.6, ONCE DAILY
     Route: 048
     Dates: start: 201709, end: 201710
  12. CLONAZEPAM. [Concomitant]
     Active Substance: CLONAZEPAM
     Dosage: 0.5, ONCE DAILY
     Route: 048
     Dates: start: 201710, end: 201711
  13. CLONAZEPAM. [Concomitant]
     Active Substance: CLONAZEPAM
     Dosage: 0.4, ONCE DAILY
     Route: 048
     Dates: start: 201711, end: 20171210
  14. LEVETIRACETAM. [Concomitant]
     Active Substance: LEVETIRACETAM
     Dosage: 150, ONCE DAILY
     Route: 048
     Dates: start: 201710, end: 201710
  15. LEVETIRACETAM. [Concomitant]
     Active Substance: LEVETIRACETAM
     Dosage: 1000, ONCE DAILY
     Route: 048
     Dates: start: 20180209
  16. INFLUENZA HA VACCINE [Suspect]
     Active Substance: INFLUENZA VIRUS VACCINE
     Indication: ANTIVIRAL PROPHYLAXIS
     Dosage: UNK, ONCE DAILY
     Route: 065
     Dates: start: 20171205, end: 20171205
  17. INFLUENZA HA VACCINE [Suspect]
     Active Substance: INFLUENZA VIRUS VACCINE
     Dosage: UNK, ONCE DAILY
     Route: 065
     Dates: start: 20171226, end: 20171226
  18. PROPOFOL. [Concomitant]
     Active Substance: PROPOFOL
     Dosage: UNK UNK, UNKNOWN FREQ.
     Route: 065
     Dates: start: 20180114
  19. ZONISAMIDE. [Concomitant]
     Active Substance: ZONISAMIDE
     Indication: PRODUCT USED FOR UNKNOWN INDICATION
     Dosage: UNK UNK, UNKNOWN FREQ.
     Route: 065
  20. LEVETIRACETAM. [Concomitant]
     Active Substance: LEVETIRACETAM
     Dosage: 200, ONCE DAILY
     Route: 048
     Dates: start: 201709, end: 201710
  21. LEVETIRACETAM. [Concomitant]
     Active Substance: LEVETIRACETAM
     Dosage: 50, ONCE DAILY
     Route: 048
     Dates: start: 20171211, end: 20180208
  22. PHENOBARBITAL. [Concomitant]
     Active Substance: PHENOBARBITAL
     Route: 048
     Dates: start: 201708, end: 20180120
  23. CLONAZEPAM. [Concomitant]
     Active Substance: CLONAZEPAM
     Dosage: 1.5, ONCE DAILY
     Route: 048
     Dates: start: 20180209
  24. PERAMPANEL [Concomitant]
     Active Substance: PERAMPANEL
     Indication: PRODUCT USED FOR UNKNOWN INDICATION
     Dosage: 4, ONCE DAILY
     Route: 048
     Dates: start: 20180101
  25. L CARTIN [Concomitant]
     Active Substance: LEVOCARNITINE HYDROCHLORIDE
     Indication: PRODUCT USED FOR UNKNOWN INDICATION
     Dosage: UNK UNK, UNKNOWN FREQ.
     Route: 048
     Dates: start: 20180101, end: 20180208
  26. RAVONAL [Concomitant]
     Active Substance: THIOPENTAL
     Indication: PRODUCT USED FOR UNKNOWN INDICATION
     Dosage: UNK UNK, UNKNOWN FREQ.
     Route: 065
     Dates: start: 20160517
  27. SODIUM VALPROATE [Concomitant]
     Active Substance: VALPROATE SODIUM
     Indication: PRODUCT USED FOR UNKNOWN INDICATION
     Dosage: UNK UNK, UNKNOWN FREQ.
     Route: 065
  28. CLOBAZAM [Concomitant]
     Active Substance: CLOBAZAM
     Indication: PRODUCT USED FOR UNKNOWN INDICATION
     Dosage: UNK UNK, UNKNOWN FREQ.
     Route: 065
  29. CLONAZEPAM. [Concomitant]
     Active Substance: CLONAZEPAM
     Dosage: 0.3, ONCE DAILY
     Route: 048
     Dates: start: 20171211, end: 20180208
  30. LEVETIRACETAM. [Concomitant]
     Active Substance: LEVETIRACETAM
     Indication: PRODUCT USED FOR UNKNOWN INDICATION
     Dosage: 300, ONCE DAILY
     Route: 048
     Dates: start: 201709, end: 201709
  31. L CARTIN [Concomitant]
     Active Substance: LEVOCARNITINE HYDROCHLORIDE
     Route: 048
     Dates: start: 20180209, end: 20180413
  32. TACROLIMUS. [Suspect]
     Active Substance: TACROLIMUS
     Indication: ACUTE ENCEPHALITIS WITH REFRACTORY, REPETITIVE PARTIAL SEIZURES
     Dosage: UNK UNK, UNKNOWN FREQ.
     Route: 048
  33. RAVONAL [Concomitant]
     Active Substance: THIOPENTAL
     Dosage: UNK UNK, UNKNOWN FREQ.
     Route: 065
     Dates: start: 20180114
  34. LEVETIRACETAM. [Concomitant]
     Active Substance: LEVETIRACETAM
     Dosage: 100, ONCE DAILY
     Route: 048
     Dates: start: 201710, end: 20171210
  35. NITRAZEPAM [Concomitant]
     Active Substance: NITRAZEPAM
     Indication: PRODUCT USED FOR UNKNOWN INDICATION
     Dosage: 7.0, ONCE DAILY
     Route: 048
     Dates: start: 20180101, end: 2018

REACTIONS (2)
  - Acute disseminated encephalomyelitis [Recovered/Resolved with Sequelae]
  - Off label use [Unknown]

NARRATIVE: CASE EVENT DATE: 20180112
